FAERS Safety Report 5371743-0 (Version None)
Quarter: 2007Q2

REPORT INFORMATION
  Report Type: 
  Country: None (occurrence: None)
  Receive Date: 20070627
  Receipt Date: 20070618
  Transmission Date: 20071010
  Serious: Yes (Death)
  Sender: FDA-Public Use
  Company Number: DK-ELI_LILLY_AND_COMPANY-DK200705005728

PATIENT
  Age: 48 Year
  Sex: Female
  Weight: 52 kg

DRUGS (2)
  1. DROTRECOGIN ALFA (ACTIVATED) [Suspect]
     Dosage: UNK, UNKNOWN
     Route: 055
     Dates: start: 20070209, end: 20070216
  2. CHEMOTHERAPEUTICS NOS [Concomitant]

REACTIONS (2)
  - CARDIAC ARREST [None]
  - LYMPHOMA [None]
